FAERS Safety Report 7059498-5 (Version None)
Quarter: 2010Q4

REPORT INFORMATION
  Report Type: 
  Country: None (occurrence: None)
  Receive Date: 20101025
  Receipt Date: 20101022
  Transmission Date: 20110411
  Serious: Yes (Other)
  Sender: FDA-Public Use
  Company Number: AU-WYE-G06812110

PATIENT
  Age: 36 Year
  Sex: Male
  Weight: 70 kg

DRUGS (1)
  1. PRISTIQ [Suspect]
     Indication: DEPRESSION
     Dosage: 50MG ONCE A DAY IN THE MORNING
     Route: 048
     Dates: start: 20101010, end: 20101011

REACTIONS (5)
  - ANGIOEDEMA [None]
  - INTENTIONAL DRUG MISUSE [None]
  - LIP SWELLING [None]
  - LIP ULCERATION [None]
  - PHARYNGEAL OEDEMA [None]
